FAERS Safety Report 7963910-4 (Version None)
Quarter: 2011Q4

REPORT INFORMATION
  Report Type: 
  Country: None (occurrence: None)
  Receive Date: 20111208
  Receipt Date: 20111106
  Transmission Date: 20120403
  Serious: No
  Sender: FDA-Public Use
  Company Number: US-BAYER-2011-108457

PATIENT

DRUGS (4)
  1. ALEVE (CAPLET) [Suspect]
     Route: 048
  2. LIDODERM [Concomitant]
  3. PENETREX [Concomitant]
  4. TYLENOL-500 [Concomitant]

REACTIONS (2)
  - ABDOMINAL PAIN UPPER [None]
  - NAUSEA [None]
